FAERS Safety Report 12475320 (Version 4)
Quarter: 2016Q3

REPORT INFORMATION
  Report Type: Spontaneous
  Country: NL (occurrence: NL)
  Receive Date: 20160617
  Receipt Date: 20160825
  Transmission Date: 20161109
  Serious: Yes (Other)
  Sender: FDA-Public Use
  Company Number: NL-TOLMAR, INC.-2016NL005874

PATIENT
  Age: 65 Year
  Sex: Male

DRUGS (2)
  1. ELIGARD [Suspect]
     Active Substance: LEUPROLIDE ACETATE
     Dosage: 1 DF, 1X PER 6 MONTHS
     Route: 058
     Dates: start: 20151204
  2. ELIGARD [Suspect]
     Active Substance: LEUPROLIDE ACETATE
     Indication: PROSTATE CANCER
     Dosage: 1 DF, 1X PER 6 MONTHS
     Route: 058
     Dates: start: 20130612

REACTIONS (3)
  - Terminal state [Unknown]
  - Cerebrovascular accident [Unknown]
  - Prostate cancer [Unknown]

NARRATIVE: CASE EVENT DATE: 20150320
